FAERS Safety Report 13369926 (Version 1)
Quarter: 2017Q1

REPORT INFORMATION
  Report Type: Spontaneous
  Country: US (occurrence: US)
  Receive Date: 20170324
  Receipt Date: 20170324
  Transmission Date: 20170429
  Serious: No
  Sender: FDA-Public Use
  Company Number: US-ROCHE-1298023

PATIENT
  Sex: Male

DRUGS (9)
  1. LANSOPRAZOLE. [Concomitant]
     Active Substance: LANSOPRAZOLE
     Route: 065
  2. DULERA [Concomitant]
     Active Substance: FORMOTEROL FUMARATE DIHYDRATE\MOMETASONE FUROATE
     Route: 065
  3. PROVENTIL [Concomitant]
     Active Substance: ALBUTEROL
     Dosage: AS REQUIRED
     Route: 065
  4. ASTEPRO [Concomitant]
     Active Substance: AZELASTINE HYDROCHLORIDE
     Route: 045
  5. EPIPEN [Concomitant]
     Active Substance: EPINEPHRINE
     Dosage: AS REQUIRED
     Route: 065
  6. SINGULAIR [Concomitant]
     Active Substance: MONTELUKAST SODIUM
     Route: 065
  7. XOLAIR [Suspect]
     Active Substance: OMALIZUMAB
     Route: 058
  8. NASONEX [Concomitant]
     Active Substance: MOMETASONE FUROATE
     Dosage: 1 SPRAY IN EACH NOSTRIL
     Route: 045
  9. XOLAIR [Suspect]
     Active Substance: OMALIZUMAB
     Indication: ASTHMA
     Route: 058

REACTIONS (2)
  - Sinusitis [Recovered/Resolved]
  - Asthenia [Recovered/Resolved]
